FAERS Safety Report 12313761 (Version 1)
Quarter: 2016Q2

REPORT INFORMATION
  Report Type: Spontaneous
  Country: US (occurrence: US)
  Receive Date: 20160428
  Receipt Date: 20160428
  Transmission Date: 20160815
  Serious: No
  Sender: FDA-Public Use
  Company Number: US-ALKERMES INC.-ALK-2015-000172

PATIENT

DRUGS (2)
  1. VIVITROL [Suspect]
     Active Substance: NALTREXONE
     Indication: ALCOHOLISM
     Dosage: 380 MG, QMO
     Route: 030
  2. VIVITROL [Suspect]
     Active Substance: NALTREXONE
     Indication: DRUG DEPENDENCE

REACTIONS (5)
  - Drug effect decreased [Not Recovered/Not Resolved]
  - Drug dependence [Not Recovered/Not Resolved]
  - Alcohol use [Not Recovered/Not Resolved]
  - Drug abuse [Not Recovered/Not Resolved]
  - Alcoholism [Not Recovered/Not Resolved]
